FAERS Safety Report 23813501 (Version 1)
Quarter: 2024Q2

REPORT INFORMATION
  Report Type: Spontaneous
  Country: CA (occurrence: CA)
  Receive Date: 20240503
  Receipt Date: 20240503
  Transmission Date: 20240716
  Serious: Yes (Hospitalization)
  Sender: FDA-Public Use
  Company Number: CA-BAYER-2024A062040

PATIENT
  Age: 72 Year
  Sex: Male

DRUGS (1)
  1. KERENDIA [Suspect]
     Active Substance: FINERENONE
     Dosage: 10 MG, QD
     Dates: start: 2024

REACTIONS (3)
  - Loss of consciousness [None]
  - Diarrhoea [Recovering/Resolving]
  - Muscle spasms [None]

NARRATIVE: CASE EVENT DATE: 20240420
